FAERS Safety Report 6670814-6 (Version None)
Quarter: 2010Q2

REPORT INFORMATION
  Report Type: 
  Country: None (occurrence: None)
  Receive Date: 20100406
  Receipt Date: 20100406
  Transmission Date: 20101027
  Serious: Yes (Life-Threatening)
  Sender: FDA-Public Use
  Company Number: None

PATIENT
  Age: 55 Year
  Sex: Female
  Weight: 63.5036 kg

DRUGS (3)
  1. HYDROCODONE BITARTRATE AND ACETAMINOPHEN [Suspect]
     Indication: MYALGIA
     Dosage: ONCE TWICE DAILY
     Dates: start: 20100310, end: 20100310
  2. HYDROCODONE BITARTRATE AND ACETAMINOPHEN [Suspect]
  3. SUB FOR FLEXERIL 30 MG TAB MCN [Suspect]

REACTIONS (9)
  - BLOOD PRESSURE DECREASED [None]
  - CONFUSIONAL STATE [None]
  - DIZZINESS [None]
  - DYSSTASIA [None]
  - HEART RATE IRREGULAR [None]
  - HYPERHIDROSIS [None]
  - HYPOAESTHESIA [None]
  - NAUSEA [None]
  - PRODUCT QUALITY ISSUE [None]
